FAERS Safety Report 22537473 (Version 1)
Quarter: 2023Q2

REPORT INFORMATION
  Report Type: Spontaneous
  Country: US (occurrence: US)
  Receive Date: 20230608
  Receipt Date: 20230608
  Transmission Date: 20230721
  Serious: No
  Sender: FDA-Public Use
  Company Number: US-MYLANLABS-2023M1046466

PATIENT

DRUGS (1)
  1. LATANOPROST [Suspect]
     Active Substance: LATANOPROST
     Indication: Ocular hypertension
     Dosage: 0.005 PERCENT
     Route: 047
     Dates: start: 20230418

REACTIONS (3)
  - Extra dose administered [Unknown]
  - Product design issue [Unknown]
  - Physical product label issue [Unknown]
